FAERS Safety Report 11697481 (Version 3)
Quarter: 2016Q1

REPORT INFORMATION
  Report Type: Spontaneous
  Country: US (occurrence: US)
  Receive Date: 20151104
  Receipt Date: 20160205
  Transmission Date: 20160525
  Serious: No
  Sender: FDA-Public Use
  Company Number: US-PFIZER INC-2015356593

PATIENT
  Age: 75 Year
  Sex: Female

DRUGS (5)
  1. PEPCID [Suspect]
     Active Substance: FAMOTIDINE
     Indication: NAUSEA
     Dosage: 10 MG, DAILY
     Dates: start: 20150924, end: 20150926
  2. PANTOPRAZOLE [Suspect]
     Active Substance: PANTOPRAZOLE SODIUM
     Indication: DIARRHOEA
  3. PEPCID [Suspect]
     Active Substance: FAMOTIDINE
     Indication: DIARRHOEA
  4. ONDANSETRON HCL [Concomitant]
     Active Substance: ONDANSETRON HYDROCHLORIDE
     Dosage: UNK
     Dates: start: 20150816
  5. PANTOPRAZOLE [Suspect]
     Active Substance: PANTOPRAZOLE SODIUM
     Indication: NAUSEA
     Dosage: 40 MG, DAILY
     Dates: start: 20150924, end: 20150926

REACTIONS (1)
  - Acne [Recovered/Resolved]

NARRATIVE: CASE EVENT DATE: 20150926
